FAERS Safety Report 9356093 (Version 1)
Quarter: 2013Q2

REPORT INFORMATION
  Report Type: Spontaneous
  Country: US (occurrence: US)
  Receive Date: 20130619
  Receipt Date: 20130619
  Transmission Date: 20140414
  Serious: Yes (Other)
  Sender: FDA-Public Use
  Company Number: US-AMGEN-USASP2013042879

PATIENT
  Sex: 0

DRUGS (1)
  1. EPOGEN [Suspect]
     Indication: RENAL FAILURE CHRONIC
     Dosage: 10000 UNIT, 3 TIMES/WK
     Route: 065
     Dates: start: 201109

REACTIONS (2)
  - Haemoglobin abnormal [Unknown]
  - Therapeutic response decreased [Unknown]
